FAERS Safety Report 6556020-4 (Version None)
Quarter: 2010Q1

REPORT INFORMATION
  Report Type: 
  Country: None (occurrence: None)
  Receive Date: 20100128
  Receipt Date: 20090211
  Transmission Date: 20100710
  Serious: Yes (Other)
  Sender: FDA-Public Use
  Company Number: US-TEVA-183954USA

PATIENT
  Sex: Female

DRUGS (8)
  1. COPAXONE [Suspect]
     Indication: MULTIPLE SCLEROSIS
     Route: 058
     Dates: start: 20031216
  2. TYLOX [Concomitant]
  3. OLANZAPINE [Concomitant]
  4. CYCLOBENZAPRINE HYDROCHLORIDE [Concomitant]
  5. ESCITALOPRAM OXALATE [Concomitant]
  6. MORPHINE SULFATE [Concomitant]
  7. GABAPENTIN [Concomitant]
  8. PREDNISONE [Concomitant]

REACTIONS (1)
  - INJECTION SITE NECROSIS [None]
